FAERS Safety Report 10533279 (Version 1)
Quarter: 2014Q4

REPORT INFORMATION
  Report Type: Spontaneous
  Country: JP (occurrence: None)
  Receive Date: 20141020
  Receipt Date: 20141020
  Transmission Date: 20150529
  Serious: Yes (Hospitalization)
  Sender: FDA-Public Use
  Company Number: JP-017390

PATIENT
  Age: 90 Year
  Sex: Male
  Weight: 45 kg

DRUGS (3)
  1. GONAX [Suspect]
     Active Substance: DEGARELIX
     Indication: PROSTATE CANCER
     Dosage: (240 MG TOTAL SUBCUTANEOUS)
     Route: 058
     Dates: start: 20130522, end: 20130522
  2. CASODEX [Concomitant]
     Active Substance: BICALUTAMIDE
  3. HARNAL [Concomitant]
     Active Substance: TAMSULOSIN HYDROCHLORIDE

REACTIONS (5)
  - Blood urea increased [None]
  - Blood albumin decreased [None]
  - Gastric ulcer haemorrhage [None]
  - Haemoglobin decreased [None]
  - Erythema [None]

NARRATIVE: CASE EVENT DATE: 20130524
